FAERS Safety Report 4562893-7 (Version None)
Quarter: 2005Q1

REPORT INFORMATION
  Report Type: 
  Country: None (occurrence: None)
  Receive Date: 20050121
  Receipt Date: 20050118
  Transmission Date: 20050727
  Serious: Yes (Life-Threatening)
  Sender: FDA-Public Use
  Company Number: 200510050BVD

PATIENT

DRUGS (1)
  1. AVELOX [Suspect]
     Dosage: 400 MG, ORAL
     Route: 048

REACTIONS (3)
  - CIRCULATORY COLLAPSE [None]
  - HYPOTENSION [None]
  - PARAESTHESIA [None]
